FAERS Safety Report 8108322-8 (Version None)
Quarter: 2012Q1

REPORT INFORMATION
  Report Type: 
  Country: None (occurrence: None)
  Receive Date: 20120202
  Receipt Date: 20120123
  Transmission Date: 20120608
  Serious: Yes (Other)
  Sender: FDA-Public Use
  Company Number: PHEH2011US012840

PATIENT
  Sex: Male

DRUGS (4)
  1. LEXAPRO [Concomitant]
     Indication: DEPRESSION
     Dosage: 4 DF, QD
     Route: 048
  2. XANAX [Concomitant]
     Indication: ANXIETY
     Dosage: 4 TAB BID AND  0.5 TAB QHS
     Route: 048
  3. REMERON [Concomitant]
     Indication: SLEEP DISORDER
     Dosage: 4 DF, QHS
     Route: 048
  4. CLOZARIL [Suspect]
     Indication: SCHIZOPHRENIA
     Dosage: 5 TABLET QHS
     Route: 048

REACTIONS (3)
  - INFECTION [None]
  - NEUTROPHIL COUNT INCREASED [None]
  - WHITE BLOOD CELL COUNT INCREASED [None]
